FAERS Safety Report 10418707 (Version 1)
Quarter: 2014Q2

REPORT INFORMATION
  Report Type: Report from Study
  Country: US (occurrence: None)
  Receive Date: 20140627
  Receipt Date: 20140627
  Transmission Date: 20141212
  Serious: No
  Sender: FDA-Public Use
  Company Number: CABO-14004215

PATIENT
  Age: 51 Year
  Sex: Male
  Weight: 180 kg

DRUGS (2)
  1. COMETRIQ (CABOZANTINIB) CAPSULE [Suspect]
     Indication: RENAL CANCER
     Route: 048
     Dates: start: 20140418, end: 2014
  2. AMLODIPINE [Concomitant]

REACTIONS (7)
  - Thyroid function test abnormal [None]
  - Bone pain [None]
  - Nausea [None]
  - Fatigue [None]
  - Arthralgia [None]
  - Off label use [None]
  - Metastatic pain [None]
